FAERS Safety Report 5077826-7 (Version None)
Quarter: 2006Q3

REPORT INFORMATION
  Report Type: 
  Country: None (occurrence: None)
  Receive Date: 20060807
  Receipt Date: 20060731
  Transmission Date: 20061208
  Serious: Yes (Other)
  Sender: FDA-Public Use
  Company Number: 2006093761

PATIENT
  Sex: Male

DRUGS (5)
  1. COOL MINT LISTERINE (MENTHOL, METHYL SALICYLATE, EUCALYPTOL, THYMOL) [Suspect]
     Indication: DENTAL DISORDER PROPHYLAXIS
     Dosage: 1/2 CAP PERIODICALLY, ORAL
     Route: 048
     Dates: end: 20060701
  2. WARFARIN SODIUM [Concomitant]
  3. DILTIAZEM [Concomitant]
  4. PROPAFENONE HCL [Concomitant]
  5. RAMIPRIL [Concomitant]

REACTIONS (1)
  - ATRIAL FIBRILLATION [None]
